FAERS Safety Report 23881165 (Version 1)
Quarter: 2024Q2

REPORT INFORMATION
  Report Type: Spontaneous
  Country: AU (occurrence: AU)
  Receive Date: 20240521
  Receipt Date: 20240521
  Transmission Date: 20240715
  Serious: Yes (Hospitalization)
  Sender: FDA-Public Use
  Company Number: AU-SUN PHARMACEUTICAL INDUSTRIES LTD-2024R1-446833

PATIENT
  Age: 38 Year
  Sex: Male
  Weight: 94.7 kg

DRUGS (15)
  1. CAPECITABINE [Suspect]
     Active Substance: CAPECITABINE
     Indication: Metastatic gastric cancer
     Dosage: 4300 MILLIGRAM
     Route: 048
     Dates: start: 20231214, end: 20231225
  2. CAPECITABINE [Suspect]
     Active Substance: CAPECITABINE
     Dosage: 3300 MILLIGRAM
     Route: 048
     Dates: start: 20240227, end: 20240228
  3. CAPECITABINE [Suspect]
     Active Substance: CAPECITABINE
     Dosage: 3300 MILLIGRAM
     Route: 048
     Dates: start: 20240104, end: 20240118
  4. CAPECITABINE [Suspect]
     Active Substance: CAPECITABINE
     Dosage: 3300 MILLIGRAM
     Route: 048
     Dates: start: 20240215, end: 20240226
  5. NIVOLUMAB [Suspect]
     Active Substance: NIVOLUMAB
     Indication: Metastatic gastric cancer
     Dosage: 360 MILLIGRAM
     Route: 042
     Dates: start: 20240104
  6. NIVOLUMAB [Suspect]
     Active Substance: NIVOLUMAB
     Dosage: 360 MILLIGRAM
     Route: 042
     Dates: start: 20231214
  7. NIVOLUMAB [Suspect]
     Active Substance: NIVOLUMAB
     Dosage: 360 MILLIGRAM
     Route: 042
     Dates: start: 20240307, end: 20240307
  8. OXALIPLATIN [Suspect]
     Active Substance: OXALIPLATIN
     Indication: Metastatic gastric cancer
     Dosage: 295 MILLIGRAM
     Route: 042
     Dates: start: 20231214, end: 20231214
  9. OXALIPLATIN [Suspect]
     Active Substance: OXALIPLATIN
     Dosage: 168.75 MILLIGRAM
     Route: 042
     Dates: start: 20240104, end: 20240104
  10. SOF-10 [Suspect]
     Active Substance: SOF-10
     Indication: Metastatic gastric cancer
     Dosage: 1800 MILLIGRAM
     Route: 042
     Dates: start: 20240104
  11. SOF-10 [Suspect]
     Active Substance: SOF-10
     Dosage: 1800 MILLIGRAM
     Route: 042
     Dates: start: 20231214
  12. SOF-10 [Suspect]
     Active Substance: SOF-10
     Dosage: 1800 MILLIGRAM
     Route: 042
     Dates: start: 20240307, end: 20240307
  13. AKYNZEO [Concomitant]
     Indication: Product used for unknown indication
     Dosage: 300 MILLIGRAM
     Route: 048
     Dates: start: 20231214
  14. DEXAMETHASONE [Concomitant]
     Active Substance: DEXAMETHASONE
     Indication: Product used for unknown indication
     Dosage: 8 MILLIGRAM
     Route: 048
     Dates: start: 20231214
  15. METOCLOPRAMIDE [Concomitant]
     Active Substance: METOCLOPRAMIDE
     Indication: Product used for unknown indication
     Dosage: 10 MILLIGRAM
     Route: 042

REACTIONS (1)
  - Infusion related reaction [Recovered/Resolved]

NARRATIVE: CASE EVENT DATE: 20240104
